FAERS Safety Report 5507307-5 (Version None)
Quarter: 2007Q4

REPORT INFORMATION
  Report Type: 
  Country: None (occurrence: None)
  Receive Date: 20071102
  Receipt Date: 20071023
  Transmission Date: 20080405
  Serious: Yes (Hospitalization)
  Sender: FDA-Public Use
  Company Number: B0493210A

PATIENT
  Age: 17 Year
  Sex: Female
  Weight: 59.8748 kg

DRUGS (3)
  1. LAMOTRIGINE [Suspect]
     Dosage: ORAL
     Route: 048
  2. IBUPROFEN [Concomitant]
  3. ACETAMINOPHEN [Concomitant]

REACTIONS (11)
  - AGITATION [None]
  - CONFUSIONAL STATE [None]
  - DRUG LEVEL BELOW THERAPEUTIC [None]
  - DRUG TOXICITY [None]
  - DYSKINESIA [None]
  - GLASGOW COMA SCALE ABNORMAL [None]
  - LOSS OF CONSCIOUSNESS [None]
  - MYDRIASIS [None]
  - OVERDOSE [None]
  - SUICIDE ATTEMPT [None]
  - VOMITING [None]
